FAERS Safety Report 12972145 (Version 1)
Quarter: 2016Q4

REPORT INFORMATION
  Report Type: Spontaneous
  Country: US (occurrence: US)
  Receive Date: 20161124
  Receipt Date: 20161124
  Transmission Date: 20170207
  Serious: Yes (Other)
  Sender: FDA-Public Use
  Company Number: US-ALVOGEN-2016-ALVOGEN-025048

PATIENT

DRUGS (1)
  1. LISINOPRIL. [Suspect]
     Active Substance: LISINOPRIL
     Indication: PRODUCT USE ISSUE

REACTIONS (4)
  - Angioedema [Unknown]
  - Swollen tongue [Unknown]
  - Decreased appetite [Unknown]
  - Anaphylactic reaction [Unknown]
